FAERS Safety Report 11044704 (Version 3)
Quarter: 2015Q2

REPORT INFORMATION
  Report Type: Spontaneous
  Country: US (occurrence: US)
  Receive Date: 20150417
  Receipt Date: 20150515
  Transmission Date: 20150821
  Serious: No
  Sender: FDA-Public Use
  Company Number: US-ROXANE LABORATORIES, INC.-2015-RO-00616RO

PATIENT
  Sex: Female

DRUGS (1)
  1. LETROZOLE. [Suspect]
     Active Substance: LETROZOLE
     Indication: ENDOMETRIOSIS
     Dosage: 5 MG
     Route: 048

REACTIONS (2)
  - Product quality issue [Unknown]
  - Drug ineffective for unapproved indication [Unknown]
